FAERS Safety Report 6172198-9 (Version None)
Quarter: 2009Q2

REPORT INFORMATION
  Report Type: 
  Country: None (occurrence: None)
  Receive Date: 20090427
  Receipt Date: 20090427
  Transmission Date: 20091009
  Serious: Yes (Other)
  Sender: FDA-Public Use
  Company Number: None

PATIENT
  Age: 47 Year
  Sex: Male
  Weight: 99.7913 kg

DRUGS (1)
  1. MORPHINE SULFATE ER 60MG MALLINCKROOT [Suspect]
     Indication: ANKYLOSING SPONDYLITIS
     Dosage: 1 8-12 HOURS AS NEEDED PO
     Route: 048
     Dates: start: 20090303, end: 20090425

REACTIONS (4)
  - BEDRIDDEN [None]
  - DRUG INEFFECTIVE [None]
  - PAIN [None]
  - PRODUCT QUALITY ISSUE [None]
